FAERS Safety Report 6248287-7 (Version None)
Quarter: 2009Q2

REPORT INFORMATION
  Report Type: 
  Country: None (occurrence: None)
  Receive Date: 20090629
  Receipt Date: 20090616
  Transmission Date: 20091009
  Serious: Yes (Hospitalization)
  Sender: FDA-Public Use
  Company Number: PHHY2009DE24345

PATIENT
  Sex: Female
  Weight: 45 kg

DRUGS (2)
  1. EXFORGE [Suspect]
     Dosage: UNK
     Dates: start: 20090514
  2. BETA BLOCKING AGENTS [Suspect]
     Dosage: UNK
     Dates: start: 20090514

REACTIONS (3)
  - INTENTIONAL OVERDOSE [None]
  - POISONING [None]
  - SUICIDE ATTEMPT [None]
